FAERS Safety Report 4594285-9 (Version None)
Quarter: 2005Q1

REPORT INFORMATION
  Report Type: 
  Country: None (occurrence: None)
  Receive Date: 20050301
  Receipt Date: 20040914
  Transmission Date: 20050727
  Serious: No
  Sender: FDA-Public Use
  Company Number: US-GLAXOSMITHKLINE-A0525622A

PATIENT
  Age: 39 Year
  Sex: Male

DRUGS (9)
  1. VALTREX [Suspect]
     Indication: HUMAN HERPESVIRUS 6 INFECTION
     Dosage: 500MG THREE TIMES PER DAY
     Route: 048
     Dates: start: 20030801
  2. DOXYCYCLINE [Suspect]
     Indication: LYME DISEASE
  3. AMOXICILLIN [Concomitant]
  4. ULTRAM [Concomitant]
  5. FLEXERIL [Concomitant]
  6. ELAVIL [Concomitant]
  7. AVAPRO [Concomitant]
  8. MOBIC [Concomitant]
  9. NASONEX [Concomitant]

REACTIONS (12)
  - DRUG INEFFECTIVE [None]
  - HAEMATOCHEZIA [None]
  - HAEMATURIA [None]
  - HERPES VIRUS INFECTION [None]
  - HYPERHIDROSIS [None]
  - HYPERSENSITIVITY [None]
  - MIGRAINE [None]
  - MUSCLE SPASMS [None]
  - PAIN [None]
  - PYREXIA [None]
  - STOMACH DISCOMFORT [None]
  - VERTIGO [None]
